FAERS Safety Report 19045901 (Version 1)
Quarter: 2021Q1

REPORT INFORMATION
  Report Type: Report from Study
  Country: US (occurrence: US)
  Receive Date: 20210322
  Receipt Date: 20210322
  Transmission Date: 20210420
  Serious: No
  Sender: FDA-Public Use
  Company Number: US-SUNOVION-2021SUN000877

PATIENT
  Sex: Female

DRUGS (1)
  1. KYNMOBI [Suspect]
     Active Substance: APOMORPHINE HYDROCHLORIDE
     Indication: PARKINSON^S DISEASE
     Dosage: 10 MG
     Route: 060
     Dates: start: 20210309, end: 20210309

REACTIONS (7)
  - Oral mucosal blistering [Unknown]
  - Oral mucosal discolouration [Unknown]
  - Disorientation [Unknown]
  - Stomatitis [Unknown]
  - Aphasia [Unknown]
  - Tongue disorder [Unknown]
  - Tooth loss [Unknown]
